FAERS Safety Report 11801035 (Version 1)
Quarter: 2015Q4

REPORT INFORMATION
  Report Type: Spontaneous
  Country: FR (occurrence: FR)
  Receive Date: 20151204
  Receipt Date: 20151204
  Transmission Date: 20160305
  Serious: Yes (Other)
  Sender: FDA-Public Use
  Company Number: FR-FRESENIUS KABI-FK201506278

PATIENT
  Age: 65 Year
  Sex: Male

DRUGS (6)
  1. CELECOXIB. [Concomitant]
     Active Substance: CELECOXIB
  2. GEMCITABINE [Suspect]
     Active Substance: GEMCITABINE\GEMCITABINE HYDROCHLORIDE
     Indication: PANCREATIC CARCINOMA
     Route: 065
  3. CALCIUM [Concomitant]
     Active Substance: CALCIUM
  4. MULTIVITAMINS [Concomitant]
     Active Substance: VITAMINS
  5. CAPECITABINE. [Concomitant]
     Active Substance: CAPECITABINE
  6. LISINOPRIL. [Concomitant]
     Active Substance: LISINOPRIL

REACTIONS (1)
  - Thrombotic microangiopathy [Unknown]
